FAERS Safety Report 17919723 (Version 7)
Quarter: 2023Q1

REPORT INFORMATION
  Report Type: Report from Study
  Country: CA (occurrence: CA)
  Receive Date: 20200619
  Receipt Date: 20230329
  Transmission Date: 20230417
  Serious: Yes (Hospitalization, Other)
  Sender: FDA-Public Use
  Company Number: PHHY2015CA163359

PATIENT
  Age: 53 Year
  Sex: Male

DRUGS (20)
  1. SANDOSTATIN [Suspect]
     Active Substance: OCTREOTIDE ACETATE
     Indication: Acromegaly
     Dosage: TID FOR 14 DAYS
     Route: 058
     Dates: start: 20151209, end: 20151222
  2. SANDOSTATIN [Suspect]
     Active Substance: OCTREOTIDE ACETATE
     Dosage: 30 MG 4 WEEKS
     Route: 065
     Dates: start: 20151223
  3. SANDOSTATIN [Suspect]
     Active Substance: OCTREOTIDE ACETATE
  4. SANDOSTATIN LAR DEPOT [Suspect]
     Active Substance: OCTREOTIDE ACETATE
     Indication: Acromegaly
     Dosage: 20 MG, QMO (4 WEEKS)
     Route: 030
     Dates: start: 20151223
  5. SANDOSTATIN LAR DEPOT [Suspect]
     Active Substance: OCTREOTIDE ACETATE
     Dosage: 30 MG (EVERY 6 WEEKS)
     Route: 030
     Dates: start: 20151223
  6. SANDOSTATIN LAR DEPOT [Suspect]
     Active Substance: OCTREOTIDE ACETATE
     Dosage: 30 MG, QMO (EVERY 4 WEEKS)
     Route: 030
     Dates: start: 20160503
  7. SANDOSTATIN LAR DEPOT [Suspect]
     Active Substance: OCTREOTIDE ACETATE
     Dosage: 30 MG (EVERY 6 WEEKS)
     Route: 030
  8. ATORVASTATIN [Suspect]
     Active Substance: ATORVASTATIN
     Indication: Product used for unknown indication
     Dosage: 40 MG, DIE HS
     Route: 065
  9. ATORVASTATIN [Suspect]
     Active Substance: ATORVASTATIN
     Dosage: 80 MG, QD
     Route: 065
  10. METFORMIN HYDROCHLORIDE [Suspect]
     Active Substance: METFORMIN HYDROCHLORIDE
     Indication: Product used for unknown indication
     Dosage: 850 MG, BID
     Route: 048
  11. BISOPROLOL [Concomitant]
     Active Substance: BISOPROLOL
     Indication: Product used for unknown indication
     Dosage: 5 MG, QD (ONE FOURTH PILL AT AM)
     Route: 065
     Dates: start: 20151124
  12. BISOPROLOL [Concomitant]
     Active Substance: BISOPROLOL
     Dosage: 1, QD
     Route: 065
  13. FUROSEMIDE [Concomitant]
     Active Substance: FUROSEMIDE
     Indication: Product used for unknown indication
     Dosage: UNK
     Route: 065
  14. BOSENTAN [Concomitant]
     Active Substance: BOSENTAN
     Indication: Product used for unknown indication
     Dosage: UNK
     Route: 065
  15. DOSTINEX [Concomitant]
     Active Substance: CABERGOLINE
     Indication: Product used for unknown indication
     Dosage: 0.5 MG, (TWICE PER WEEK)
     Route: 048
  16. TAMSULOSIN HYDROCHLORIDE [Concomitant]
     Active Substance: TAMSULOSIN HYDROCHLORIDE
     Indication: Product used for unknown indication
     Dosage: 0.4 MG, QD (DIE)
     Route: 065
  17. METFORMIN FC [Concomitant]
     Indication: Product used for unknown indication
     Dosage: 850 MG, BID
     Route: 065
  18. SOMAVERT [Concomitant]
     Active Substance: PEGVISOMANT
     Indication: Product used for unknown indication
     Dosage: UNK
     Route: 065
     Dates: start: 20180223
  19. PERINDOPRIL [Concomitant]
     Active Substance: PERINDOPRIL
     Indication: Product used for unknown indication
     Dosage: 4 MG, QD
     Route: 048
     Dates: start: 2019
  20. PERINDOPRIL [Concomitant]
     Active Substance: PERINDOPRIL
     Dosage: 6 MG, QD
     Route: 048
     Dates: start: 2019

REACTIONS (24)
  - Renal haematoma [Unknown]
  - Blood pressure increased [Unknown]
  - Arthralgia [Unknown]
  - Erythema [Unknown]
  - Blister [Unknown]
  - Lactose intolerance [Unknown]
  - Abdominal distension [Unknown]
  - Flatulence [Unknown]
  - Faeces soft [Unknown]
  - Diarrhoea [Unknown]
  - Blood cholesterol abnormal [Unknown]
  - Blood pressure fluctuation [Unknown]
  - Gastroenteritis viral [Recovered/Resolved]
  - Injection site injury [Unknown]
  - Dyspnoea exertional [Unknown]
  - Insulin-like growth factor increased [Unknown]
  - Pain [Unknown]
  - Fatigue [Unknown]
  - Headache [Unknown]
  - Heart rate decreased [Unknown]
  - Needle issue [Unknown]
  - Inappropriate schedule of product administration [Unknown]
  - Therapeutic response decreased [Unknown]
  - Product dispensing error [Unknown]

NARRATIVE: CASE EVENT DATE: 20160213
